FAERS Safety Report 16288131 (Version 3)
Quarter: 2019Q3

REPORT INFORMATION
  Report Type: Spontaneous
  Country: AU (occurrence: AU)
  Receive Date: 20190508
  Receipt Date: 20190707
  Transmission Date: 20191004
  Serious: Yes (Other)
  Sender: FDA-Public Use
  Company Number: AU-SHIRE-AU201914878

PATIENT

DRUGS (2)
  1. OBIZUR [Suspect]
     Active Substance: ANTIHEMOPHILIC FACTOR PORCINE, B-DOMAIN TRUNCATED RECOMBINANT
     Indication: HAEMORRHAGE INTRACRANIAL
     Dosage: UNK
     Route: 065
  2. OBIZUR [Suspect]
     Active Substance: ANTIHEMOPHILIC FACTOR PORCINE, B-DOMAIN TRUNCATED RECOMBINANT
     Indication: ACQUIRED HAEMOPHILIA

REACTIONS (5)
  - Intestinal ischaemia [Unknown]
  - Embolism [Unknown]
  - Subdural haematoma [Unknown]
  - Atrial fibrillation [Unknown]
  - Haemorrhage [Unknown]
